FAERS Safety Report 10244598 (Version 1)
Quarter: 2014Q2

REPORT INFORMATION
  Report Type: Spontaneous
  Country: US (occurrence: US)
  Receive Date: 20140618
  Receipt Date: 20140618
  Transmission Date: 20141212
  Serious: Yes (Death)
  Sender: FDA-Public Use
  Company Number: US-GLAXOSMITHKLINE-A1077419A

PATIENT
  Age: 56 Year
  Sex: Male

DRUGS (6)
  1. VOTRIENT [Suspect]
     Indication: PRODUCT USED FOR UNKNOWN INDICATION
     Dosage: 800MG PER DAY
     Route: 048
     Dates: start: 20140211
  2. MIRTAZAPINE [Concomitant]
  3. LIDOCAINE [Concomitant]
  4. DEXILANT [Concomitant]
  5. LEVOTHYROXINE [Concomitant]
  6. BENICAR [Concomitant]

REACTIONS (1)
  - Metastasis [Fatal]
